FAERS Safety Report 5480696-6 (Version None)
Quarter: 2007Q4

REPORT INFORMATION
  Report Type: 
  Country: None (occurrence: None)
  Receive Date: 20071003
  Receipt Date: 20070927
  Transmission Date: 20080405
  Serious: Yes (Life-Threatening)
  Sender: FDA-Public Use
  Company Number: 2007SP017514

PATIENT
  Age: 86 Year
  Sex: Female

DRUGS (1)
  1. ALBUTEROL [Suspect]
     Indication: ASTHMA
     Dosage: PO
     Route: 048

REACTIONS (2)
  - ASTHMA [None]
  - DRUG INEFFECTIVE [None]
